FAERS Safety Report 18864047 (Version 1)
Quarter: 2021Q1

REPORT INFORMATION
  Report Type: Spontaneous
  Country: US (occurrence: US)
  Receive Date: 20210208
  Receipt Date: 20210208
  Transmission Date: 20210420
  Serious: No
  Sender: FDA-Public Use
  Company Number: None

PATIENT
  Age: 38 Year
  Sex: Female

DRUGS (1)
  1. COSENTYX [Suspect]
     Active Substance: SECUKINUMAB
     Route: 058
     Dates: start: 20201028

REACTIONS (7)
  - Burning sensation [None]
  - Dizziness [None]
  - Throat irritation [None]
  - Vomiting [None]
  - Nausea [None]
  - Urticaria [None]
  - Peripheral swelling [None]

NARRATIVE: CASE EVENT DATE: 20210125
